FAERS Safety Report 10503318 (Version 1)
Quarter: 2014Q4

REPORT INFORMATION
  Report Type: Spontaneous
  Country: US (occurrence: US)
  Receive Date: 20141008
  Receipt Date: 20141008
  Transmission Date: 20150528
  Serious: Yes (Hospitalization, Other)
  Sender: FDA-Public Use
  Company Number: US-AMGEN-USASP2014075636

PATIENT
  Sex: Female

DRUGS (6)
  1. COUMADIN [Concomitant]
     Active Substance: WARFARIN SODIUM
  2. PROLIA [Suspect]
     Active Substance: DENOSUMAB
     Indication: OSTEOPOROSIS
     Dosage: UNK
     Route: 065
     Dates: start: 20130322
  3. PULMICORT TURBUHALER [Concomitant]
     Active Substance: BUDESONIDE
  4. LEVOTHYROXINE [Concomitant]
     Active Substance: LEVOTHYROXINE
  5. TIKOSYN [Concomitant]
     Active Substance: DOFETILIDE
  6. SIMVASTATIN. [Concomitant]
     Active Substance: SIMVASTATIN

REACTIONS (13)
  - Open fracture [Unknown]
  - Haemorrhage [Unknown]
  - Cervical cord compression [Unknown]
  - Radius fracture [Unknown]
  - Clostridium difficile infection [Unknown]
  - Apparent death [Unknown]
  - Polyp [Unknown]
  - Laceration [Unknown]
  - Road traffic accident [Unknown]
  - Rib fracture [Unknown]
  - Wrist fracture [Unknown]
  - Walking disability [Unknown]
  - Rectal lesion [Unknown]

NARRATIVE: CASE EVENT DATE: 20130917
